FAERS Safety Report 19779538 (Version 1)
Quarter: 2021Q3

REPORT INFORMATION
  Report Type: Report from Study
  Country: CO (occurrence: CO)
  Receive Date: 20210902
  Receipt Date: 20210902
  Transmission Date: 20211014
  Serious: Yes (Other)
  Sender: FDA-Public Use
  Company Number: CO-TAKEDA-2021TUS052957

PATIENT
  Age: 1 Year
  Sex: Female
  Weight: 15 kg

DRUGS (2)
  1. MONTELUKAST [Concomitant]
     Active Substance: MONTELUKAST SODIUM
     Dosage: 4 MILLIGRAM
     Route: 048
  2. HUMAN IMMUNOGLOBULIN; HYALURONIDASE [Suspect]
     Active Substance: HUMAN IMMUNOGLOBULIN G\HYALURONIDASE RECOMBINANT HUMAN
     Indication: PRIMARY IMMUNODEFICIENCY SYNDROME
     Dosage: 3 GRAM, Q2WEEKS
     Route: 058
     Dates: start: 20210727

REACTIONS (5)
  - Cough [Recovering/Resolving]
  - Influenza [Recovering/Resolving]
  - Weight decreased [Unknown]
  - Respiratory tract infection [Unknown]
  - Productive cough [Unknown]

NARRATIVE: CASE EVENT DATE: 20210819
